FAERS Safety Report 9143543 (Version 4)
Quarter: 2013Q2

REPORT INFORMATION
  Report Type: Report from Study
  Country: US (occurrence: US)
  Receive Date: 20130306
  Receipt Date: 20130424
  Transmission Date: 20140414
  Serious: Yes (Hospitalization)
  Sender: FDA-Public Use
  Company Number: US-ACTELION-A-NJ2013-78704

PATIENT
  Age: 64 Year
  Sex: Female

DRUGS (21)
  1. TRACLEER [Suspect]
     Indication: PULMONARY ARTERIAL HYPERTENSION
     Dosage: UNK
     Route: 048
     Dates: start: 20080929, end: 20130318
  2. VELETRI [Suspect]
     Indication: PULMONARY ARTERIAL HYPERTENSION
     Dosage: 25 NG/KG, PER MIN
     Route: 041
     Dates: start: 20111109, end: 2013
  3. SILDENAFIL [Concomitant]
     Dosage: UNK
     Dates: start: 20101030
  4. ADCIRCA [Concomitant]
  5. ASPIRIN [Concomitant]
     Dosage: UNK
     Dates: start: 20080924
  6. PLAVIX [Concomitant]
     Dosage: UNK
     Dates: start: 20110727
  7. ACETYLCYSTEINE [Concomitant]
  8. ALLOPURINOL [Concomitant]
  9. ALPRAZOLAM [Concomitant]
     Dosage: UNK
     Dates: start: 20120420
  10. ATORVASTATIN [Concomitant]
     Dosage: UNK
     Dates: start: 20080924
  11. AZELASTINE [Concomitant]
     Dosage: UNK
     Route: 045
     Dates: start: 20120718
  12. DENOSUMAB [Concomitant]
     Dosage: UNK
     Dates: start: 20110114
  13. FUROSEMIDE [Concomitant]
     Dosage: UNK
     Dates: start: 20120213
  14. HYDROXYCHLOROQUINE [Concomitant]
     Dosage: UNK
     Dates: start: 20080924
  15. PANTOPRAZOLE [Concomitant]
     Dosage: UNK
     Dates: start: 20080924
  16. SERTRALINE [Concomitant]
     Dosage: UNK
     Dates: start: 20080924
  17. SODIUM BICARBONATE [Concomitant]
     Dosage: UNK
     Dates: start: 20110907
  18. UBIDECARENONE [Concomitant]
     Dosage: UNK
     Dates: start: 20091005
  19. VALSARTAN [Concomitant]
     Dosage: UNK
     Dates: start: 20100226
  20. ZOLPIDEM [Concomitant]
     Dosage: UNK
     Dates: start: 20080924
  21. ADVAIR [Concomitant]

REACTIONS (16)
  - Renal failure acute [Unknown]
  - Anaemia [Unknown]
  - Liver function test abnormal [Unknown]
  - Aspartate aminotransferase increased [Unknown]
  - Alanine aminotransferase increased [Unknown]
  - Blood alkaline phosphatase increased [Unknown]
  - Pulmonary arterial hypertension [Recovered/Resolved]
  - Dyspnoea [Recovered/Resolved]
  - Dyspnoea exertional [Recovered/Resolved]
  - Condition aggravated [Recovered/Resolved]
  - Nodule [Unknown]
  - Throat irritation [Unknown]
  - Wheezing [Unknown]
  - Haemoptysis [Unknown]
  - Dizziness [Unknown]
  - Fatigue [Unknown]
